FAERS Safety Report 25901035 (Version 1)
Quarter: 2025Q4

REPORT INFORMATION
  Report Type: Spontaneous
  Country: EU (occurrence: EU)
  Receive Date: 20251009
  Receipt Date: 20251009
  Transmission Date: 20260118
  Serious: Yes (Hospitalization)
  Sender: RANBAXY
  Company Number: EU-AEMPS-1700053

PATIENT
  Age: 79 Year
  Sex: Male
  Weight: 66 kg

DRUGS (3)
  1. GEMCITABINE [Suspect]
     Active Substance: GEMCITABINE
     Indication: Prostate cancer metastatic
     Dosage: CYCLES OF 1622 MG
     Route: 042
     Dates: start: 20250108, end: 20250319
  2. BAVENCIO [Suspect]
     Active Substance: AVELUMAB
     Indication: Prostate cancer metastatic
     Dosage: 800 MG IN CYCLES
     Route: 042
     Dates: start: 20250404, end: 20250404
  3. CARBOPLATIN [Suspect]
     Active Substance: CARBOPLATIN
     Indication: Prostate cancer metastatic
     Dosage: IN CYCLES, OF 200 MG
     Route: 042
     Dates: start: 20250108, end: 20250319

REACTIONS (1)
  - Pneumonia [Recovered/Resolved]

NARRATIVE: CASE EVENT DATE: 20250404
